FAERS Safety Report 8534158-X (Version None)
Quarter: 2012Q3

REPORT INFORMATION
  Report Type: 
  Country: None (occurrence: None)
  Receive Date: 20120724
  Receipt Date: 20120720
  Transmission Date: 20120928
  Serious: No
  Sender: FDA-Public Use
  Company Number: US-TEVA-349775USA

PATIENT
  Age: 23 Year
  Sex: Female
  Weight: 68.1 kg

DRUGS (2)
  1. PLAN B ONE-STEP [Suspect]
     Indication: POST COITAL CONTRACEPTION
     Dosage: 1.5 MILLIGRAM;
     Route: 048
     Dates: start: 20120709, end: 20120709
  2. NUVARING [Concomitant]
     Indication: CONTRACEPTION
     Dates: start: 20120702

REACTIONS (6)
  - DIARRHOEA [None]
  - VAGINAL DISCHARGE [None]
  - POLLAKIURIA [None]
  - PELVIC PAIN [None]
  - NAUSEA [None]
  - VOMITING [None]
